FAERS Safety Report 6978030-5 (Version None)
Quarter: 2010Q3

REPORT INFORMATION
  Report Type: 
  Country: None (occurrence: None)
  Receive Date: 20100913
  Receipt Date: 20100831
  Transmission Date: 20110219
  Serious: Yes (Other)
  Sender: FDA-Public Use
  Company Number: US-JNJFOC-20100900673

PATIENT
  Sex: Female

DRUGS (8)
  1. REMICADE [Suspect]
     Indication: PSORIASIS
     Route: 042
  2. REMICADE [Suspect]
     Route: 042
  3. REMICADE [Suspect]
     Indication: PSORIATIC ARTHROPATHY
     Route: 042
  4. REMICADE [Suspect]
     Route: 042
  5. IBUPROFEN [Concomitant]
     Indication: PAIN
     Dosage: AS NEEDED
  6. ACETAMINOPHEN W/ASPIRIN/CAFFEINE [Concomitant]
     Indication: PAIN
     Dosage: AS NEEDED
  7. INSULIN [Concomitant]
     Indication: DIABETES MELLITUS
  8. METFORMIN [Concomitant]
     Indication: DIABETES MELLITUS

REACTIONS (14)
  - BACK PAIN [None]
  - CHEST PAIN [None]
  - DRUG EFFECT DECREASED [None]
  - DRUG HYPERSENSITIVITY [None]
  - DYSPHAGIA [None]
  - DYSPNOEA [None]
  - EAR PAIN [None]
  - EYE PAIN [None]
  - FEELING COLD [None]
  - FEELING HOT [None]
  - HYPOKINESIA [None]
  - MUSCLE SPASMS [None]
  - PAIN IN JAW [None]
  - PAIN OF SKIN [None]
